FAERS Safety Report 21700161 (Version 1)
Quarter: 2022Q4

REPORT INFORMATION
  Report Type: Spontaneous
  Country: DE (occurrence: DE)
  Receive Date: 20221208
  Receipt Date: 20221208
  Transmission Date: 20230113
  Serious: Yes (Other)
  Sender: FDA-Public Use
  Company Number: DE-TEVA-2022-DE-2078939

PATIENT
  Age: 61 Year
  Sex: Male

DRUGS (3)
  1. ZOLPIDEM [Suspect]
     Active Substance: ZOLPIDEM TARTRATE
     Indication: Product used for unknown indication
     Dosage: 0.5 DF MAX 1 TIME PER WEEK FREQUENCY AS REQUIRED
     Route: 065
     Dates: start: 2017
  2. ZOLPIDEM [Suspect]
     Active Substance: ZOLPIDEM TARTRATE
     Indication: Product used for unknown indication
     Dosage: 5 MG, MAX 1 TIME PER WEEK, FREQUENCY AS REQUIRED
     Route: 065
     Dates: start: 202208
  3. ZOLPIDEM [Suspect]
     Active Substance: ZOLPIDEM TARTRATE
     Dosage: 10 MG, MAX 1 TIME PER WEEK, FREQUENCY AS REQUIRED
     Route: 065
     Dates: start: 202208

REACTIONS (3)
  - Drug dependence [Unknown]
  - Product formulation issue [Unknown]
  - Drug ineffective [Unknown]
